FAERS Safety Report 7440641-0 (Version None)
Quarter: 2011Q2

REPORT INFORMATION
  Report Type: 
  Country: None (occurrence: None)
  Receive Date: 20110427
  Receipt Date: 20110422
  Transmission Date: 20111010
  Serious: Yes (Death)
  Sender: FDA-Public Use
  Company Number: TR-PFIZER INC-2011087663

PATIENT
  Age: 68 Year
  Sex: Female

DRUGS (3)
  1. TARGOCID [Suspect]
     Dosage: 400 MG, 1X/DAY
     Route: 042
     Dates: start: 20100212
  2. IMIPENEM [Suspect]
     Dosage: 500 MG, 4X/DAY
     Route: 042
     Dates: start: 20100210
  3. TAZOCIN [Suspect]
     Dosage: 4.5 G, 4X/DAY
     Route: 042
     Dates: start: 20100206, end: 20100212

REACTIONS (1)
  - DEATH [None]
